FAERS Safety Report 22162348 (Version 1)
Quarter: 2023Q1

REPORT INFORMATION
  Report Type: Spontaneous
  Country: US (occurrence: US)
  Receive Date: 20230331
  Receipt Date: 20230331
  Transmission Date: 20230417
  Serious: No
  Sender: FDA-Public Use
  Company Number: US-PFIZER INC-PV202300059189

PATIENT
  Age: 13 Year
  Sex: Male

DRUGS (1)
  1. EUCRISA [Suspect]
     Active Substance: CRISABOROLE
     Indication: Eczema
     Dosage: UNK

REACTIONS (4)
  - Drug hypersensitivity [Unknown]
  - Rash [Unknown]
  - Off label use [Unknown]
  - Drug ineffective for unapproved indication [Unknown]
